FAERS Safety Report 11745731 (Version 2)
Quarter: 2015Q4

REPORT INFORMATION
  Report Type: Spontaneous
  Country: DE (occurrence: DE)
  Receive Date: 20151117
  Receipt Date: 20151125
  Transmission Date: 20160304
  Serious: Yes (Death, Hospitalization)
  Sender: FDA-Public Use
  Company Number: DE-TEVA-609776GER

PATIENT
  Age: 20 Year
  Sex: Female

DRUGS (5)
  1. RIVAROXABAN [Concomitant]
     Active Substance: RIVAROXABAN
  2. IFOSFAMIDE. [Concomitant]
     Active Substance: IFOSFAMIDE
     Indication: SYNOVIAL SARCOMA
     Dosage: 3 G/M2 ON DAYS 1 TO 3
  3. HEPARIN [Concomitant]
     Active Substance: HEPARIN SODIUM
     Route: 042
  4. DOXORUBICIN [Suspect]
     Active Substance: DOXORUBICIN
     Indication: SYNOVIAL SARCOMA
     Dosage: 4 CYCLES OF DOXORUBICIN; 60MG/M2 ON DAY 1
  5. IFOSFAMIDE. [Concomitant]
     Active Substance: IFOSFAMIDE
     Dosage: ON DAYS 1 TO 2 AND 22 TO 23 OF THE RADIATION COURSE

REACTIONS (3)
  - Sepsis [Fatal]
  - Cardiotoxicity [Fatal]
  - Cardiogenic shock [Fatal]
